FAERS Safety Report 9146710 (Version 1)
Quarter: 2013Q1

REPORT INFORMATION
  Report Type: Spontaneous
  Country: US (occurrence: US)
  Receive Date: 20130307
  Receipt Date: 20130307
  Transmission Date: 20140127
  Serious: Yes (Other)
  Sender: FDA-Public Use
  Company Number: US-ASTRAZENECA-2013SE13575

PATIENT
  Age: 67 Year
  Sex: Male
  Weight: 98 kg

DRUGS (8)
  1. NEXIUM [Suspect]
     Indication: GASTROOESOPHAGEAL REFLUX DISEASE
     Route: 048
     Dates: start: 2008, end: 201212
  2. HYDROXYCHLOROQUINE [Concomitant]
     Dates: start: 2008
  3. COUMADIN [Concomitant]
     Indication: THROMBOSIS PROPHYLAXIS
     Dosage: DAILY
  4. TAMSULOFIN [Concomitant]
     Indication: PROSTATIC DISORDER
  5. VENLASAXINE HCL [Concomitant]
     Indication: DEPRESSION
     Dosage: 75MG
  6. VITAMIN D [Concomitant]
     Indication: ARTHRITIS
     Dosage: TWICE WEEK
  7. METOPROLOL TARTRATE [Concomitant]
     Indication: BLOOD PRESSURE ABNORMAL
  8. VITAMIN B SHOT [Concomitant]
     Dosage: MONTH

REACTIONS (8)
  - Brain injury [Unknown]
  - Rib fracture [Unknown]
  - Choking [Unknown]
  - Hypertension [Unknown]
  - Dysuria [Unknown]
  - Dysphagia [Unknown]
  - Oesophageal dysplasia [Unknown]
  - Intentional drug misuse [Unknown]
